FAERS Safety Report 5504594-4 (Version None)
Quarter: 2007Q4

REPORT INFORMATION
  Report Type: 
  Country: None (occurrence: None)
  Receive Date: 20071101
  Receipt Date: 20071025
  Transmission Date: 20080405
  Serious: Yes (Other)
  Sender: FDA-Public Use
  Company Number: GB-ROXANE LABORATORIES, INC-2007-BP-23323RO

PATIENT
  Age: 90 Year
  Sex: Female

DRUGS (4)
  1. AMLODIPINE [Suspect]
     Indication: HYPERTENSION
     Route: 048
  2. ASPIRIN [Suspect]
     Route: 048
  3. GASTROGRAFIN [Concomitant]
     Indication: SCAN WITH CONTRAST
     Route: 054
  4. OMNIPAQUE 140 [Concomitant]
     Indication: SCAN WITH CONTRAST

REACTIONS (1)
  - INTESTINAL DIAPHRAGM DISEASE [None]
